FAERS Safety Report 8609918-7 (Version None)
Quarter: 2012Q3

REPORT INFORMATION
  Report Type: 
  Country: None (occurrence: None)
  Receive Date: 20120821
  Receipt Date: 20120810
  Transmission Date: 20120928
  Serious: Yes (Other)
  Sender: FDA-Public Use
  Company Number: JP-RB-042167-12

PATIENT
  Age: 37 Year
  Sex: Female

DRUGS (5)
  1. ULTIVA [Suspect]
     Indication: ANALGESIC THERAPY
     Dosage: UNIT DOSE UNKNOWN
     Route: 042
     Dates: start: 20120628, end: 20120628
  2. DIPRIVAN [Suspect]
     Indication: SEDATION
     Dosage: UNIT DOSE UNKNOWN
     Route: 042
     Dates: start: 20120628, end: 20120628
  3. ZONISAMIDE [Concomitant]
     Indication: CONVULSION
     Dosage: DOSING DETAILS UNKNOWN
     Route: 048
  4. BUPRENORPHINE HCL [Suspect]
     Indication: ANALGESIC THERAPY
     Dosage: UNIT DOSE UNKNOWN
     Route: 042
     Dates: start: 20120628, end: 20120628
  5. PHENYTOIN [Concomitant]
     Indication: CONVULSION
     Dosage: DOSING DETAILS UNKNOWN
     Route: 048

REACTIONS (5)
  - ACIDOSIS [None]
  - DELAYED RECOVERY FROM ANAESTHESIA [None]
  - RESPIRATION ABNORMAL [None]
  - RESPIRATORY DEPRESSION [None]
  - CONVULSION [None]
